FAERS Safety Report 6311908-4 (Version None)
Quarter: 2009Q3

REPORT INFORMATION
  Report Type: 
  Country: None (occurrence: None)
  Receive Date: 20090817
  Receipt Date: 20090811
  Transmission Date: 20100115
  Serious: Yes (Hospitalization, Disabling)
  Sender: FDA-Public Use
  Company Number: DE-BRISTOL-MYERS SQUIBB COMPANY-14714406

PATIENT
  Age: 75 Year
  Sex: Male
  Weight: 81 kg

DRUGS (3)
  1. CETUXIMAB [Suspect]
     Indication: NON-SMALL CELL LUNG CANCER
     Dosage: RECENT INF:15JUL2009;2MG/ML DELAYED ON 16JUL09
     Route: 042
     Dates: start: 20090420
  2. CARBOPLATIN [Suspect]
     Indication: NON-SMALL CELL LUNG CANCER
     Dosage: 1DF=AUC3 RECENT INF:15JUL2009 DELAYED ON 16JUL09
     Route: 042
     Dates: start: 20090420
  3. GEMCITABINE [Suspect]
     Indication: NON-SMALL CELL LUNG CANCER
     Dosage: RECENT INF:15JUL2009; DOSE DELAYE ON 16JUL09
     Route: 042
     Dates: start: 20090420

REACTIONS (1)
  - ALVEOLITIS [None]
